FAERS Safety Report 6076475-1 (Version None)
Quarter: 2009Q1

REPORT INFORMATION
  Report Type: 
  Country: None (occurrence: None)
  Receive Date: 20090211
  Receipt Date: 20090211
  Transmission Date: 20090719
  Serious: Yes (Hospitalization)
  Sender: FDA-Public Use
  Company Number: None

PATIENT
  Sex: Female
  Weight: 68.0396 kg

DRUGS (8)
  1. ZOMETA [Suspect]
     Indication: OSTEOPOROSIS
     Dosage: GIVEN AT HOSPITAL INFUSION CENTER ONE INFUSION
     Dates: start: 20081120
  2. ALDACTONE [Concomitant]
  3. PERCOCET [Concomitant]
  4. PREDNISONE [Concomitant]
  5. AMITRIPTYLINE [Concomitant]
  6. ASPIRIN [Concomitant]
  7. VIT D [Concomitant]
  8. THYROLAR [Concomitant]

REACTIONS (4)
  - CHEST PAIN [None]
  - MITRAL VALVE INCOMPETENCE [None]
  - PULMONARY HYPERTENSION [None]
  - VENTRICULAR EXTRASYSTOLES [None]
